FAERS Safety Report 9818931 (Version 1)
Quarter: 2014Q1

REPORT INFORMATION
  Report Type: Spontaneous
  Country: US (occurrence: US)
  Receive Date: 20140115
  Receipt Date: 20140115
  Transmission Date: 20141002
  Serious: Yes (Life-Threatening, Hospitalization, Other)
  Sender: FDA-Public Use
  Company Number: US-PFIZER INC-2014011338

PATIENT
  Age: 60 Year
  Sex: Female

DRUGS (4)
  1. FLUOROURACIL [Suspect]
     Indication: COLON CANCER METASTATIC
     Dosage: 400 MG/M2, IV PUSH
     Route: 042
  2. FLUOROURACIL [Suspect]
     Dosage: 2400 MG/M2, IV INFUSION OVER 46 HOURS
     Route: 042
  3. LEUCOVORIN [Concomitant]
     Indication: COLON CANCER METASTATIC
     Dosage: 400 MG/M2, UNK
     Route: 042
  4. OXALIPLATIN [Concomitant]
     Indication: COLON CANCER METASTATIC
     Dosage: 85 MG/M2, UNK
     Route: 042

REACTIONS (10)
  - Pancytopenia [Not Recovered/Not Resolved]
  - Mucosal inflammation [Unknown]
  - Oesophagitis [Unknown]
  - Pain [Unknown]
  - Dehydration [Unknown]
  - Clostridium difficile infection [Unknown]
  - Large intestine perforation [Unknown]
  - Peritonitis [Unknown]
  - Delirium [Recovered/Resolved]
  - Factor VII deficiency [Unknown]
